FAERS Safety Report 6637259-6 (Version None)
Quarter: 2010Q1

REPORT INFORMATION
  Report Type: 
  Country: None (occurrence: None)
  Receive Date: 20100316
  Receipt Date: 20100127
  Transmission Date: 20100710
  Serious: No
  Sender: FDA-Public Use
  Company Number: US-ABBOTT-10P-163-0623223-00

PATIENT
  Sex: Female
  Weight: 62.652 kg

DRUGS (3)
  1. TRILIPIX [Suspect]
     Indication: BLOOD CHOLESTEROL INCREASED
     Route: 048
     Dates: start: 20090601, end: 20100117
  2. LISINOPRIL [Concomitant]
     Indication: HYPERTENSION
     Route: 048
  3. ASPIRIN [Concomitant]
     Indication: CARDIOVASCULAR EVENT PROPHYLAXIS
     Route: 048

REACTIONS (3)
  - ALOPECIA [None]
  - NIGHT SWEATS [None]
  - ONYCHOCLASIS [None]
